FAERS Safety Report 5783528-1 (Version None)
Quarter: 2008Q2

REPORT INFORMATION
  Report Type: 
  Country: None (occurrence: None)
  Receive Date: 20080605
  Receipt Date: 20080327
  Transmission Date: 20081010
  Serious: No
  Sender: FDA-Public Use
  Company Number: A0716177A

PATIENT

DRUGS (3)
  1. ALLI [Suspect]
  2. VITAMIN [Suspect]
  3. CITRUCEL [Concomitant]

REACTIONS (6)
  - ADVERSE DRUG REACTION [None]
  - BLOOD IRON DECREASED [None]
  - FOOD CRAVING [None]
  - HEADACHE [None]
  - NAUSEA [None]
  - SALT CRAVING [None]
